FAERS Safety Report 8125891-2 (Version None)
Quarter: 2012Q1

REPORT INFORMATION
  Report Type: 
  Country: None (occurrence: None)
  Receive Date: 20120209
  Receipt Date: 20120131
  Transmission Date: 20120608
  Serious: Yes (Death)
  Sender: FDA-Public Use
  Company Number: US-CELGENEUS-163-21880-11120899

PATIENT
  Sex: Female

DRUGS (17)
  1. LISINOPRIL [Concomitant]
     Route: 048
  2. PROCHLORPERAZINE MALEATE [Concomitant]
     Indication: NAUSEA
     Dosage: 10 MILLIGRAM
     Route: 048
  3. METOPROLOL SUCCINATE [Concomitant]
     Route: 048
  4. MULTIPLE VITAMINS [Concomitant]
     Route: 048
  5. PREDNISONE [Concomitant]
     Route: 048
  6. FISH OIL CONCENTRATE [Concomitant]
     Indication: NAUSEA
     Route: 048
  7. FLECAINIDE ACETATE [Concomitant]
     Route: 048
  8. EVISTA [Concomitant]
     Route: 048
  9. VITAMIN D [Concomitant]
     Route: 048
  10. CALCIUM CITRATE [Concomitant]
     Route: 048
  11. METHIMAZOLE [Concomitant]
     Route: 048
  12. ASCORBIC ACID [Concomitant]
     Route: 048
  13. VESICARE [Concomitant]
     Dosage: 10 MILLIGRAM
     Route: 048
  14. FUROSEMIDE [Concomitant]
     Route: 048
  15. ICAPS [Concomitant]
     Route: 048
  16. REVLIMID [Suspect]
     Indication: MYELODYSPLASTIC SYNDROME
     Dosage: 5 MILLIGRAM
     Route: 048
     Dates: start: 20111109, end: 20111115
  17. PRADAXA [Concomitant]
     Route: 048

REACTIONS (1)
  - CLOSTRIDIUM DIFFICILE SEPSIS [None]
